FAERS Safety Report 7951990-1 (Version None)
Quarter: 2011Q4

REPORT INFORMATION
  Report Type: 
  Country: None (occurrence: None)
  Receive Date: 20111201
  Receipt Date: 20111123
  Transmission Date: 20120403
  Serious: Yes (Hospitalization)
  Sender: FDA-Public Use
  Company Number: FR-PFIZER INC-2011016302

PATIENT
  Age: 52 Year
  Sex: Male
  Weight: 83 kg

DRUGS (7)
  1. AVASTIN [Suspect]
     Indication: GLIOBLASTOMA
     Dosage: 825 MG, CYCLIC
     Route: 042
     Dates: start: 20100830, end: 20101214
  2. CACIT D3 [Concomitant]
     Route: 048
  3. CAMPTOSAR [Suspect]
     Indication: GLIOBLASTOMA
     Dosage: 260 MG, CYCLIC
     Dates: start: 20100830, end: 20101011
  4. KEPPRA [Concomitant]
     Indication: EPILEPSY
     Route: 048
  5. NEXIUM [Concomitant]
     Indication: OESOPHAGITIS
     Route: 048
  6. TEMOZOLOMIDE [Suspect]
     Indication: GLIOBLASTOMA
     Dosage: 150 MG, CYCLIC
     Route: 048
     Dates: start: 20101108, end: 20101223
  7. MEDROL [Concomitant]
     Dosage: UNK
     Route: 048
     Dates: start: 20100819

REACTIONS (2)
  - CHOLECYSTITIS [None]
  - CHEMICAL PERITONITIS [None]
